FAERS Safety Report 6492635-X (Version None)
Quarter: 2009Q4

REPORT INFORMATION
  Report Type: 
  Country: None (occurrence: None)
  Receive Date: 20091214
  Receipt Date: 20091207
  Transmission Date: 20100525
  Serious: Yes (Hospitalization)
  Sender: FDA-Public Use
  Company Number: FR-SP-2009-05367

PATIENT
  Age: 74 Year
  Sex: Male

DRUGS (1)
  1. BCG  THERAPEUTICS [Suspect]
     Indication: BLADDER CANCER
     Dosage: WEEKLY INSTILLATION
     Route: 043

REACTIONS (8)
  - BONE MARROW GRANULOMA [None]
  - BOVINE TUBERCULOSIS [None]
  - CHILLS [None]
  - FATIGUE [None]
  - INTERSTITIAL LUNG DISEASE [None]
  - LEUKOPENIA [None]
  - PYREXIA [None]
  - WEIGHT DECREASED [None]
